FAERS Safety Report 15849116 (Version 1)
Quarter: 2019Q1

REPORT INFORMATION
  Report Type: Spontaneous
  Country: US (occurrence: US)
  Receive Date: 20190121
  Receipt Date: 20190121
  Transmission Date: 20190417
  Serious: Yes (Hospitalization, Other)
  Sender: FDA-Public Use
  Company Number: US-BAYER-2019-015721

PATIENT
  Age: 78 Year
  Sex: Female
  Weight: 54 kg

DRUGS (2)
  1. BAYER ASPIRIN [Suspect]
     Active Substance: ASPIRIN
     Indication: PAIN
     Route: 048
     Dates: start: 2015
  2. CODEINE [Concomitant]
     Active Substance: CODEINE

REACTIONS (1)
  - Internal haemorrhage [Unknown]
